FAERS Safety Report 17928436 (Version 4)
Quarter: 2020Q3

REPORT INFORMATION
  Report Type: Spontaneous
  Country: US (occurrence: US)
  Receive Date: 20200623
  Receipt Date: 20200814
  Transmission Date: 20201103
  Serious: Yes (Other)
  Sender: FDA-Public Use
  Company Number: US-CELGENEUS-USA-20200605554

PATIENT
  Age: 56 Year
  Sex: Female

DRUGS (40)
  1. BROVANA [Concomitant]
     Active Substance: ARFORMOTEROL TARTRATE
     Indication: PRODUCT USED FOR UNKNOWN INDICATION
     Route: 065
  2. ACETAMINOPHEN. [Concomitant]
     Active Substance: ACETAMINOPHEN
     Indication: PRODUCT USED FOR UNKNOWN INDICATION
     Route: 048
  3. ALPRAZOLAM. [Concomitant]
     Active Substance: ALPRAZOLAM
     Indication: PRODUCT USED FOR UNKNOWN INDICATION
     Route: 048
  4. BUSPIRONE HCL [Concomitant]
     Active Substance: BUSPIRONE HYDROCHLORIDE
     Indication: PRODUCT USED FOR UNKNOWN INDICATION
     Route: 065
  5. CYMBALTA [Concomitant]
     Active Substance: DULOXETINE HYDROCHLORIDE
     Indication: PRODUCT USED FOR UNKNOWN INDICATION
     Route: 048
  6. GABAPENTIN. [Concomitant]
     Active Substance: GABAPENTIN
     Indication: PRODUCT USED FOR UNKNOWN INDICATION
     Route: 048
  7. IPRATROPIUM?ALBUTEROL [Concomitant]
     Active Substance: ALBUTEROL\IPRATROPIUM
     Indication: PRODUCT USED FOR UNKNOWN INDICATION
     Dosage: 0.5?2.5 (3)MG/3ML
     Route: 055
  8. LANSOPRAZOLE. [Concomitant]
     Active Substance: LANSOPRAZOLE
     Indication: PRODUCT USED FOR UNKNOWN INDICATION
     Route: 048
  9. RITUXAN [Concomitant]
     Active Substance: RITUXIMAB
     Indication: PRODUCT USED FOR UNKNOWN INDICATION
     Route: 065
  10. REVLIMID [Suspect]
     Active Substance: LENALIDOMIDE
     Dosage: 5 MILLIGRAM
     Route: 048
     Dates: start: 20200611
  11. COUMADIN [Concomitant]
     Active Substance: WARFARIN SODIUM
     Route: 048
  12. DOXYCYCLINE HYCLATE. [Concomitant]
     Active Substance: DOXYCYCLINE HYCLATE
     Indication: PRODUCT USED FOR UNKNOWN INDICATION
     Route: 065
  13. ONDANSETRON HCL [Concomitant]
     Active Substance: ONDANSETRON HYDROCHLORIDE
     Indication: PRODUCT USED FOR UNKNOWN INDICATION
     Route: 048
  14. POTASSIUM CHLORIDE. [Concomitant]
     Active Substance: POTASSIUM CHLORIDE
     Indication: PRODUCT USED FOR UNKNOWN INDICATION
     Route: 048
  15. VENTOLIN HFA [Concomitant]
     Active Substance: ALBUTEROL SULFATE
     Indication: PRODUCT USED FOR UNKNOWN INDICATION
     Dosage: 108 (90 BASE0 MG/ACT? 2PUFF() INHALATION Q6 AS NEEDED
     Route: 065
  16. ARFORMOTEROL TARTRATE [Concomitant]
     Active Substance: ARFORMOTEROL TARTRATE
     Indication: PRODUCT USED FOR UNKNOWN INDICATION
     Dosage: 2ML (OF 15 MCG/2ML)
     Route: 055
  17. LOMOTIL [Concomitant]
     Active Substance: ATROPINE SULFATE\DIPHENOXYLATE HYDROCHLORIDE
     Indication: PRODUCT USED FOR UNKNOWN INDICATION
     Dosage: 2.5?0.025 MG
     Route: 048
  18. REVLIMID [Suspect]
     Active Substance: LENALIDOMIDE
     Indication: MANTLE CELL LYMPHOMA
     Dosage: 10 MILLIGRAM
     Route: 048
     Dates: start: 20200428
  19. REVLIMID [Suspect]
     Active Substance: LENALIDOMIDE
     Dosage: 5 MILLIGRAM
     Route: 048
     Dates: start: 20200715
  20. WARFARIN SODIUM. [Concomitant]
     Active Substance: WARFARIN SODIUM
     Indication: PRODUCT USED FOR UNKNOWN INDICATION
     Route: 065
  21. FLUOCINONIDE. [Concomitant]
     Active Substance: FLUOCINONIDE
     Indication: PRODUCT USED FOR UNKNOWN INDICATION
     Route: 065
  22. EMLA [Concomitant]
     Active Substance: LIDOCAINE\PRILOCAINE
     Indication: PRODUCT USED FOR UNKNOWN INDICATION
     Route: 061
  23. REVLIMID [Suspect]
     Active Substance: LENALIDOMIDE
     Indication: PLASMA CELL MYELOMA
     Dosage: 5 MILLIGRAM
     Route: 048
     Dates: start: 20200512
  24. TRAZODONE HYDROCHLORIDE. [Concomitant]
     Active Substance: TRAZODONE HYDROCHLORIDE
     Indication: PRODUCT USED FOR UNKNOWN INDICATION
     Route: 065
  25. PROCHLORPERAZINE MALEATE. [Concomitant]
     Active Substance: PROCHLORPERAZINE MALEATE
     Indication: PRODUCT USED FOR UNKNOWN INDICATION
     Dosage: 1?2 TABLETS ORAL Q6 HOUR AS NEEDED
     Route: 048
  26. POTASSIUM [Concomitant]
     Active Substance: POTASSIUM
     Indication: PRODUCT USED FOR UNKNOWN INDICATION
     Route: 065
  27. COUMADIN [Concomitant]
     Active Substance: WARFARIN SODIUM
     Indication: PRODUCT USED FOR UNKNOWN INDICATION
     Route: 048
  28. HYDROXYZINE HCL [Concomitant]
     Active Substance: HYDROXYZINE HYDROCHLORIDE
     Indication: PRODUCT USED FOR UNKNOWN INDICATION
     Route: 065
  29. CIPRO [Concomitant]
     Active Substance: CIPROFLOXACIN HYDROCHLORIDE
     Indication: PRODUCT USED FOR UNKNOWN INDICATION
     Route: 065
  30. REVLIMID [Suspect]
     Active Substance: LENALIDOMIDE
     Dosage: 5 MILLIGRAM
     Route: 048
     Dates: start: 20200528
  31. BUDESONIDE. [Concomitant]
     Active Substance: BUDESONIDE
     Indication: PRODUCT USED FOR UNKNOWN INDICATION
     Route: 065
  32. ERGOCALCIFEROL. [Concomitant]
     Active Substance: ERGOCALCIFEROL
     Indication: PRODUCT USED FOR UNKNOWN INDICATION
     Route: 065
  33. ESCITALOPRAM OXALATE. [Concomitant]
     Active Substance: ESCITALOPRAM OXALATE
     Indication: PRODUCT USED FOR UNKNOWN INDICATION
     Route: 048
  34. FLONASE [Concomitant]
     Active Substance: FLUTICASONE PROPIONATE
     Indication: PRODUCT USED FOR UNKNOWN INDICATION
     Route: 065
  35. IMODIUM A?D [Concomitant]
     Active Substance: LOPERAMIDE HYDROCHLORIDE
     Indication: PRODUCT USED FOR UNKNOWN INDICATION
     Route: 065
  36. METOPROLOL TARTRATE. [Concomitant]
     Active Substance: METOPROLOL TARTRATE
     Indication: PRODUCT USED FOR UNKNOWN INDICATION
     Route: 065
  37. TORSEMIDE. [Concomitant]
     Active Substance: TORSEMIDE
     Indication: PRODUCT USED FOR UNKNOWN INDICATION
     Route: 065
  38. ALLERGY RELIEF [Concomitant]
     Indication: PRODUCT USED FOR UNKNOWN INDICATION
     Dosage: 50MCG/ACT
     Route: 045
  39. PREDNISONE. [Concomitant]
     Active Substance: PREDNISONE
     Indication: PRODUCT USED FOR UNKNOWN INDICATION
     Route: 065
  40. KLOR CON SPRINKLE [Concomitant]
     Indication: PRODUCT USED FOR UNKNOWN INDICATION
     Route: 065

REACTIONS (6)
  - Thrombocytopenia [Unknown]
  - Anaemia [Unknown]
  - Cough [Unknown]
  - Neutropenia [Unknown]
  - Fall [Unknown]
  - White blood cell count decreased [Unknown]

NARRATIVE: CASE EVENT DATE: 20200512
